FAERS Safety Report 4418114-9 (Version None)
Quarter: 2004Q3

REPORT INFORMATION
  Report Type: 
  Country: None (occurrence: None)
  Receive Date: 20040806
  Receipt Date: 20040806
  Transmission Date: 20050211
  Serious: Yes (Other)
  Sender: FDA-Public Use
  Company Number: None

PATIENT

DRUGS (1)
  1. ANDRODERM [Suspect]
     Indication: HYPOGONADISM
     Dates: start: 20040201

REACTIONS (4)
  - APPLICATION SITE NECROSIS [None]
  - APPLICATION SITE REACTION [None]
  - BURNS SECOND DEGREE [None]
  - SKIN DESQUAMATION [None]
